FAERS Safety Report 4294595-9 (Version None)
Quarter: 2004Q1

REPORT INFORMATION
  Report Type: 
  Country: None (occurrence: None)
  Receive Date: 20040213
  Receipt Date: 20040210
  Transmission Date: 20041129
  Serious: Yes (Hospitalization, Disabling)
  Sender: FDA-Public Use
  Company Number: WAES 0402USA00826

PATIENT
  Age: 35 Year
  Sex: Female

DRUGS (7)
  1. VICODIN [Concomitant]
  2. FOSAMAX [Suspect]
     Indication: OSTEOPOROSIS
     Route: 048
  3. NEURONTIN [Concomitant]
  4. REMICADE [Concomitant]
  5. METHOTREXATE [Concomitant]
  6. MORPHINE [Concomitant]
  7. PREDNISONE [Concomitant]

REACTIONS (2)
  - DIARRHOEA [None]
  - DIFFICULTY IN WALKING [None]
